FAERS Safety Report 16301659 (Version 4)
Quarter: 2019Q2

REPORT INFORMATION
  Report Type: Report from Study
  Country: US (occurrence: US)
  Receive Date: 20190511
  Receipt Date: 20190628
  Transmission Date: 20190711
  Serious: Yes (Disabling, Other)
  Sender: FDA-Public Use
  Company Number: US-AMGEN-USASL2019007821

PATIENT
  Age: 84 Year
  Sex: Female

DRUGS (5)
  1. REPATHA [Suspect]
     Active Substance: EVOLOCUMAB
     Dosage: UNK, UNK
     Route: 065
  2. REPATHA [Suspect]
     Active Substance: EVOLOCUMAB
     Indication: BLOOD CHOLESTEROL INCREASED
     Dosage: 140 MG, QMO
     Route: 058
  3. REPATHA [Suspect]
     Active Substance: EVOLOCUMAB
     Indication: HYPERCHOLESTEROLAEMIA
     Dosage: 140 MG, Q2WK
     Route: 058
     Dates: start: 20181118
  4. REPATHA [Suspect]
     Active Substance: EVOLOCUMAB
     Dosage: UNK, UNK
     Route: 065
  5. REPATHA [Suspect]
     Active Substance: EVOLOCUMAB
     Dosage: 140 MILLIGRAM, Q2MO
     Route: 065
     Dates: start: 201906

REACTIONS (25)
  - Fatigue [Recovered/Resolved]
  - Hypersensitivity [Unknown]
  - Wrong technique in product usage process [Unknown]
  - Musculoskeletal stiffness [Recovered/Resolved]
  - Dizziness [Unknown]
  - Cough [Unknown]
  - Malaise [Unknown]
  - Pain [Unknown]
  - Injection site pain [Not Recovered/Not Resolved]
  - Incorrect dose administered [Unknown]
  - Off label use [Unknown]
  - Musculoskeletal pain [Unknown]
  - Feeling abnormal [Not Recovered/Not Resolved]
  - Nausea [Unknown]
  - Arthritis [Unknown]
  - Device issue [Unknown]
  - Muscle spasms [Unknown]
  - Accidental exposure to product [Unknown]
  - Back pain [Unknown]
  - Abdominal discomfort [Recovered/Resolved]
  - Nasopharyngitis [Unknown]
  - Weight decreased [Not Recovered/Not Resolved]
  - Adverse reaction [Unknown]
  - Blood bilirubin increased [Unknown]
  - Pain in extremity [Unknown]

NARRATIVE: CASE EVENT DATE: 201811
